FAERS Safety Report 11693138 (Version 1)
Quarter: 2015Q4

REPORT INFORMATION
  Report Type: Spontaneous
  Country: US (occurrence: US)
  Receive Date: 20151103
  Receipt Date: 20151103
  Transmission Date: 20160304
  Serious: No
  Sender: FDA-Public Use
  Company Number: PHEH2015US022005

PATIENT
  Age: 52 Year
  Sex: Male

DRUGS (1)
  1. VOTRIENT [Suspect]
     Active Substance: PAZOPANIB HYDROCHLORIDE
     Indication: BONE CANCER
     Dosage: 4 DF, QD (10 HOUR BEFORE OR 02 HRS AFTER MEALS)
     Route: 065
     Dates: start: 20150630

REACTIONS (2)
  - Gingival pain [Unknown]
  - Eating disorder [Unknown]

NARRATIVE: CASE EVENT DATE: 20150915
